FAERS Safety Report 5034566-8 (Version None)
Quarter: 2006Q2

REPORT INFORMATION
  Report Type: 
  Country: None (occurrence: None)
  Receive Date: 20060621
  Receipt Date: 20060614
  Transmission Date: 20061013
  Serious: Yes (Hospitalization)
  Sender: FDA-Public Use
  Company Number: E2090-00025-SPO-JP

PATIENT
  Age: 85 Year
  Sex: Male

DRUGS (26)
  1. ZONISAMIDE [Suspect]
     Indication: EPILEPSY
     Dosage: 200 MG, ORAL
     Route: 048
     Dates: start: 20060414, end: 20060512
  2. ASPIRIN [Concomitant]
  3. HALCION [Concomitant]
  4. OPALMON (LIMAPROST) [Concomitant]
  5. AMAZOLON (AMANTADINE HYDROCHLORIDE) [Concomitant]
  6. FERROMIA (FERROUS CITRATE) [Concomitant]
  7. CLARITHROMYCIN [Concomitant]
  8. MUCODYNE (CARBOCISTEINE) [Concomitant]
  9. LEFTOSE (LYSOZYME) [Concomitant]
  10. SYMMETREL [Concomitant]
  11. LACTEC-G (LACTATED RINGERS SOLUTION:D-SO) [Concomitant]
  12. SOLDEM 3A [Concomitant]
  13. PREDNISOLONE [Concomitant]
  14. NI (FAMOTIDINE) [Concomitant]
  15. GULUCOLIN (ONO-AMMONIUM GLYCYRRHIZINATE, GLCINE, L-CYSTEINE) [Concomitant]
  16. SOLITA-T NO. 1 [Concomitant]
  17. THEOLONG (THEOPHYLLINE) [Concomitant]
  18. PL (COMBINATION COLD REMEDY) [Concomitant]
  19. MUCOSTA (REBAMIPIDE) [Concomitant]
  20. LOBU (LOXOPROFEN SODIUM) [Concomitant]
  21. SULPERAZON (SULBACTAM SODIUM_CEFOPERAZONE SODIUM) [Concomitant]
  22. LASIX [Concomitant]
  23. ALDACTONE [Concomitant]
  24. ASPARA K (L-ASPARTATE POTASSIUM) [Concomitant]
  25. BISOLVON (BROMHEXINE HYDROCHLORIDE) [Concomitant]
  26. VENETLIN (SALBUTAMOL SULFATE) [Concomitant]

REACTIONS (12)
  - ANOREXIA [None]
  - DRUG ERUPTION [None]
  - DRUG HYPERSENSITIVITY [None]
  - GENERALISED ERYTHEMA [None]
  - HEPATIC FUNCTION ABNORMAL [None]
  - LIVER DISORDER [None]
  - OEDEMA PERIPHERAL [None]
  - PNEUMONIA [None]
  - PULMONARY OEDEMA [None]
  - RENAL DISORDER [None]
  - RENAL IMPAIRMENT [None]
  - VIRAL INFECTION [None]
